FAERS Safety Report 24943425 (Version 2)
Quarter: 2025Q1

REPORT INFORMATION
  Report Type: Report from Study
  Country: US (occurrence: US)
  Receive Date: 20250207
  Receipt Date: 20250212
  Transmission Date: 20250408
  Serious: Yes (Hospitalization)
  Sender: DAIICHI
  Company Number: US-DSJP-DS-2025-123341-US

PATIENT
  Age: 74 Year
  Sex: Male
  Weight: 63 kg

DRUGS (19)
  1. DATOPOTAMAB DERUXTECAN [Suspect]
     Active Substance: DATOPOTAMAB DERUXTECAN
     Indication: Non-small cell lung cancer
     Dosage: 404.4 MG, ONCE EVERY 3 WK (Q21D)
     Route: 042
     Dates: start: 20241126, end: 20250128
  2. BENZONATATE [Concomitant]
     Active Substance: BENZONATATE
     Indication: Cough
     Route: 048
     Dates: start: 20250102
  3. COMPAZINE [Concomitant]
     Active Substance: PROCHLORPERAZINE MALEATE
     Indication: Nausea
     Route: 048
     Dates: start: 20241122
  4. COMPAZINE [Concomitant]
     Active Substance: PROCHLORPERAZINE MALEATE
     Indication: Vomiting
  5. ONDANSETRON [Concomitant]
     Active Substance: ONDANSETRON
     Indication: Nausea
     Route: 048
     Dates: start: 20241122
  6. ONDANSETRON [Concomitant]
     Active Substance: ONDANSETRON
     Indication: Vomiting
  7. DEXAMETHASONE [Concomitant]
     Active Substance: DEXAMETHASONE
     Indication: Oral pain
     Dosage: 0.5 MG, QID
     Route: 048
     Dates: start: 20241126
  8. FLOMAX [Concomitant]
     Active Substance: TAMSULOSIN HYDROCHLORIDE
     Indication: Dysuria
     Dosage: 0.4 MG, QD
     Route: 048
     Dates: start: 20240223
  9. LIPITOR [Concomitant]
     Active Substance: ATORVASTATIN CALCIUM
     Indication: Blood cholesterol
     Dosage: 20 MG, QD
     Route: 048
  10. METFORMIN [Concomitant]
     Active Substance: METFORMIN HYDROCHLORIDE
     Indication: Diabetes mellitus
     Dosage: 1000 MG, BID
     Route: 048
     Dates: start: 20150615
  11. REMERON [Concomitant]
     Active Substance: MIRTAZAPINE
     Indication: Appetite disorder
     Route: 048
     Dates: start: 20240924
  12. DEXAMETHASONE [Concomitant]
     Active Substance: DEXAMETHASONE
     Indication: Nausea
     Route: 048
     Dates: start: 20241127
  13. DEXAMETHASONE [Concomitant]
     Active Substance: DEXAMETHASONE
     Indication: Vomiting
  14. HYDROXYZINE HYDROCHLORIDE [Concomitant]
     Active Substance: HYDROXYZINE HYDROCHLORIDE
     Indication: Anxiety
     Route: 048
     Dates: start: 20241213
  15. TADALAFIL [Concomitant]
     Active Substance: TADALAFIL
     Indication: Erectile dysfunction
     Dosage: 5 MG, ONCE EVERY 1 WK
     Route: 048
     Dates: start: 20241124
  16. ACETAMINOPHEN [Concomitant]
     Active Substance: ACETAMINOPHEN
     Indication: Premedication
     Dosage: 650 MG, ONCE EVERY 3 WK
     Route: 048
     Dates: start: 20241126
  17. BENADRYL [Concomitant]
     Active Substance: DIPHENHYDRAMINE HYDROCHLORIDE
     Indication: Premedication
     Route: 042
     Dates: start: 20241126
  18. ALOXI [Concomitant]
     Active Substance: PALONOSETRON HYDROCHLORIDE
     Indication: Premedication
     Dosage: 0.25 MG, ONCE EVERY 3 WK
     Route: 042
     Dates: start: 20241126
  19. FOSAPREPITANT DIMEGLUMINE [Concomitant]
     Active Substance: FOSAPREPITANT DIMEGLUMINE
     Indication: Premedication
     Dosage: 150 MG, ONCE EVERY 3 WK
     Route: 042
     Dates: start: 20241126

REACTIONS (24)
  - Anaemia [Not Recovered/Not Resolved]
  - Encephalopathy [Not Recovered/Not Resolved]
  - Leukocytosis [Recovered/Resolved with Sequelae]
  - Sinus tachycardia [Recovered/Resolved with Sequelae]
  - Pyrexia [Recovered/Resolved with Sequelae]
  - Hyperglycaemia [Not Recovered/Not Resolved]
  - Urinary tract infection [Recovering/Resolving]
  - Troponin I increased [Not Recovered/Not Resolved]
  - Hypoxia [Recovered/Resolved]
  - Seizure [Recovered/Resolved with Sequelae]
  - Blood sodium abnormal [Recovered/Resolved with Sequelae]
  - Multiple organ dysfunction syndrome [Not Recovered/Not Resolved]
  - Sepsis [Not Recovered/Not Resolved]
  - Decreased appetite [Not Recovered/Not Resolved]
  - Dyspepsia [Not Recovered/Not Resolved]
  - Infusion site extravasation [Not Recovered/Not Resolved]
  - Hypokalaemia [Not Recovered/Not Resolved]
  - Nausea [Not Recovered/Not Resolved]
  - Dysphagia [Not Recovered/Not Resolved]
  - Troponin [Recovering/Resolving]
  - Seizure [Recovering/Resolving]
  - Seizure anoxic [Unknown]
  - Mental disorder [Unknown]
  - Urinary tract infection [Unknown]

NARRATIVE: CASE EVENT DATE: 20250202
